FAERS Safety Report 6104071-6 (Version None)
Quarter: 2009Q1

REPORT INFORMATION
  Report Type: 
  Country: None (occurrence: None)
  Receive Date: 20090227
  Receipt Date: 20080124
  Transmission Date: 20090719
  Serious: Yes (Other)
  Sender: FDA-Public Use
  Company Number: 533393

PATIENT
  Sex: Female
  Weight: 61.2 kg

DRUGS (4)
  1. ACCUTANE [Suspect]
     Indication: ACNE
     Dosage: 40 MG DAILY
     Dates: start: 19980301, end: 19980801
  2. IBUPROFEN [Concomitant]
  3. NYQUIL (DEXTROMETHORPHAN/DOXYLAMINE SUCCINATE/PARACETAMOL/PSEUDOEPHEDR [Concomitant]
  4. DAYQUIL (DEXTROMETHORPHAN/GUAIFENESIN/PARACETAMOL/PSEUDOEPHEDRINE HYDR [Concomitant]

REACTIONS (7)
  - ABDOMINAL PAIN [None]
  - COLITIS [None]
  - COLITIS ULCERATIVE [None]
  - GASTROINTESTINAL DISORDER [None]
  - HAEMATOCHEZIA [None]
  - INFLAMMATORY BOWEL DISEASE [None]
  - RECTAL HAEMORRHAGE [None]
